FAERS Safety Report 9303500 (Version 1)
Quarter: 2013Q2

REPORT INFORMATION
  Report Type: Spontaneous
  Country: US (occurrence: None)
  Receive Date: 20130516
  Receipt Date: 20130516
  Transmission Date: 20140414
  Serious: Yes (Hospitalization)
  Sender: FDA-Public Use
  Company Number: FK201301504

PATIENT
  Age: 49 Year
  Sex: Female

DRUGS (3)
  1. CALCIUM GLUCONATE [Suspect]
     Indication: HYPOCALCAEMIA
  2. VITAMIN D [Suspect]
     Indication: SUPPLEMENTATION THERAPY
  3. POTASSIUM PHOSPHATE [Suspect]
     Indication: HYPOPHOSPHATAEMIA

REACTIONS (1)
  - Nephrocalcinosis [None]
